FAERS Safety Report 11278063 (Version 1)
Quarter: 2015Q3

REPORT INFORMATION
  Report Type: Spontaneous
  Country: DE (occurrence: DE)
  Receive Date: 20150717
  Receipt Date: 20150717
  Transmission Date: 20151125
  Serious: Yes (Other)
  Sender: FDA-Public Use
  Company Number: DE-AMGEN-DEUSP2015070962

PATIENT
  Sex: Female

DRUGS (1)
  1. ENBREL [Suspect]
     Active Substance: ETANERCEPT
     Indication: PSORIATIC ARTHROPATHY
     Dosage: 50 MG, WEEKLY
     Route: 065
     Dates: start: 20150401, end: 2015

REACTIONS (4)
  - Dyspnoea [Unknown]
  - Diarrhoea [Unknown]
  - Hypersensitivity [Unknown]
  - Chills [Unknown]

NARRATIVE: CASE EVENT DATE: 2015
